FAERS Safety Report 9829958 (Version 1)
Quarter: 2014Q1

REPORT INFORMATION
  Report Type: Spontaneous
  Country: US (occurrence: US)
  Receive Date: 20140120
  Receipt Date: 20140120
  Transmission Date: 20141002
  Serious: Yes (Hospitalization)
  Sender: FDA-Public Use
  Company Number: US-MYLANLABS-2014S1000410

PATIENT
  Age: 27 Year
  Sex: Male

DRUGS (5)
  1. LITHIUM [Suspect]
     Indication: SCHIZOAFFECTIVE DISORDER
     Dosage: 1350MG PER DAY
     Route: 065
  2. RISPERDAL [Concomitant]
     Route: 065
  3. HYDROXYZINE [Concomitant]
     Route: 065
  4. TRAZODONE [Concomitant]
     Route: 065
  5. ASENAPINE [Concomitant]
     Route: 065

REACTIONS (2)
  - Hyperthyroidism [Recovered/Resolved]
  - Thyroiditis acute [Recovered/Resolved]
